FAERS Safety Report 8763644 (Version 2)
Quarter: 2012Q4

REPORT INFORMATION
  Report Type: Report from Study
  Country: US (occurrence: US)
  Receive Date: 20120828
  Receipt Date: 20121114
  Transmission Date: 20130627
  Serious: Yes (Hospitalization)
  Sender: FDA-Public Use
  Company Number: US-VERTEX PHARMACEUTICAL INC.-2012-020335

PATIENT
  Age: 56 Year
  Sex: Female
  Weight: 87.32 kg

DRUGS (8)
  1. VX-950 (TELAPREVIR) [Suspect]
     Indication: HEPATITIS C
     Dosage: 375 mg, tid
     Route: 048
     Dates: start: 20120415, end: 20120613
  2. COPEGUS [Suspect]
     Indication: HEPATITIS C
     Dosage: Dosage Form: Tablet
     Route: 048
     Dates: start: 20110415, end: 20110618
  3. PEGASYS [Suspect]
     Indication: HEPATITIS C
     Dosage: Dosage Form: Injection
     Route: 058
     Dates: start: 20110415, end: 20110618
  4. CLOBETASOL PROPIONATE CREAM [Concomitant]
     Dosage: UNK
     Route: 061
     Dates: start: 20110607
  5. HYDROXYZINE [Concomitant]
     Dosage: 50 mg, tid
     Route: 048
  6. ATIVAN [Concomitant]
     Dosage: Dosage Form: Unspecified
     Route: 065
     Dates: start: 20110512
  7. OMEPRAZOLE [Concomitant]
     Indication: GASTROOESOPHAGEAL REFLUX DISEASE
     Dosage: 20 mg, UNK
     Route: 048
  8. CITALOPRAM [Concomitant]
     Indication: ANXIETY
     Dosage: Dosage Form: Unspecified
     Route: 048
     Dates: start: 20110408

REACTIONS (2)
  - Systemic inflammatory response syndrome [Recovered/Resolved]
  - Drug eruption [Recovered/Resolved]
